FAERS Safety Report 25563307 (Version 2)
Quarter: 2025Q3

REPORT INFORMATION
  Report Type: Report from Study
  Country: US (occurrence: US)
  Receive Date: 20250716
  Receipt Date: 20250808
  Transmission Date: 20251020
  Serious: Yes (Other)
  Sender: ALEXION PHARMACEUTICALS
  Company Number: US-AstraZeneca-CH-00908604A

PATIENT
  Age: 46 Year
  Sex: Female

DRUGS (1)
  1. STRENSIQ [Suspect]
     Active Substance: ASFOTASE ALFA
     Indication: Hypophosphatasia
     Route: 065

REACTIONS (8)
  - Mast cell activation syndrome [Unknown]
  - Hypersensitivity [Unknown]
  - Feeling hot [Unknown]
  - Erythema [Unknown]
  - Oral discomfort [Unknown]
  - Eye irritation [Unknown]
  - Hyperventilation [Unknown]
  - Heart rate increased [Unknown]

NARRATIVE: CASE EVENT DATE: 20250709
